FAERS Safety Report 24874532 (Version 1)
Quarter: 2025Q1

REPORT INFORMATION
  Report Type: Report from Study
  Country: JP (occurrence: JP)
  Receive Date: 20250122
  Receipt Date: 20250122
  Transmission Date: 20250408
  Serious: Yes (Hospitalization, Other)
  Sender: ABBVIE
  Company Number: JP-GSKJP-JP2022JPN064822

PATIENT
  Age: 70 Year
  Sex: Female

DRUGS (5)
  1. BOTULINUM TOXIN TYPE A [Suspect]
     Active Substance: BOTULINUM TOXIN TYPE A
     Indication: Hypertonic bladder
     Route: 030
     Dates: start: 20210304, end: 20210304
  2. BOTULINUM TOXIN TYPE A [Suspect]
     Active Substance: BOTULINUM TOXIN TYPE A
     Indication: Hypertonic bladder
     Route: 030
     Dates: start: 20200824, end: 20200824
  3. Choreito [Concomitant]
     Indication: Product used for unknown indication
  4. FOSFOMYCIN CALCIUM [Concomitant]
     Active Substance: FOSFOMYCIN CALCIUM
     Indication: Product used for unknown indication
  5. FOSFOMYCIN [Concomitant]
     Active Substance: FOSFOMYCIN
     Indication: Product used for unknown indication

REACTIONS (4)
  - Atrial fibrillation [Recovering/Resolving]
  - Cardiac ablation [Recovered/Resolved]
  - Urinary retention [Recovering/Resolving]
  - Herpes zoster [Recovered/Resolved]

NARRATIVE: CASE EVENT DATE: 20201227
